FAERS Safety Report 5112595-3 (Version None)
Quarter: 2006Q3

REPORT INFORMATION
  Report Type: 
  Country: None (occurrence: None)
  Receive Date: 20060922
  Receipt Date: 20060824
  Transmission Date: 20061208
  Serious: Yes (Hospitalization)
  Sender: FDA-Public Use
  Company Number: US-ROCHE-460948

PATIENT
  Age: 44 Year
  Sex: Male
  Weight: 90.3 kg

DRUGS (3)
  1. PEGASYS [Suspect]
     Indication: HEPATITIS C
     Dosage: FORM REPORTED AS PREFILLED SYRINGES.
     Route: 058
     Dates: start: 20060714, end: 20060822
  2. COPEGUS [Suspect]
     Indication: HEPATITIS C
     Route: 048
     Dates: start: 20060714, end: 20060822
  3. LEXAPRO [Suspect]
     Indication: ANTIDEPRESSANT THERAPY
     Route: 048
     Dates: start: 20060714

REACTIONS (1)
  - CEREBROVASCULAR ACCIDENT [None]
